FAERS Safety Report 5780013-8 (Version None)
Quarter: 2008Q2

REPORT INFORMATION
  Report Type: 
  Country: None (occurrence: None)
  Receive Date: 20080620
  Receipt Date: 20080613
  Transmission Date: 20081010
  Serious: Yes (Hospitalization)
  Sender: FDA-Public Use
  Company Number: FR-WYE-G01690808

PATIENT
  Sex: Male
  Weight: 68 kg

DRUGS (2)
  1. BENEFIX [Suspect]
     Indication: FACTOR IX DEFICIENCY
     Dosage: ORIGINAL FORM/3000 IU 2 TIMES PER WEEK
     Route: 042
     Dates: start: 20010101, end: 20080601
  2. BENEFIX [Suspect]
     Dosage: ADMINISTRATION OF 3000 IU
     Route: 042
     Dates: start: 20080612, end: 20080612

REACTIONS (5)
  - APHASIA [None]
  - CLONIC CONVULSION [None]
  - FORMICATION [None]
  - LOSS OF CONSCIOUSNESS [None]
  - TREMOR [None]
